FAERS Safety Report 23847479 (Version 1)
Quarter: 2024Q2

REPORT INFORMATION
  Report Type: Spontaneous
  Country: US (occurrence: US)
  Receive Date: 20240513
  Receipt Date: 20240513
  Transmission Date: 20240715
  Serious: Yes (Hospitalization)
  Sender: FDA-Public Use
  Company Number: US-JNJFOC-20240464889

PATIENT
  Sex: Female

DRUGS (1)
  1. NEUTROGENA RAPID CLEAR STUBBORN ACNE SPOT [Suspect]
     Active Substance: BENZOYL PEROXIDE
     Indication: Acne
     Dosage: HALF OF A PEA SIZE AMOUNT
     Route: 061
     Dates: start: 20240331, end: 2024

REACTIONS (4)
  - Application site dryness [Recovering/Resolving]
  - Application site irritation [Recovering/Resolving]
  - Application site swelling [Recovering/Resolving]
  - Application site reaction [Recovering/Resolving]

NARRATIVE: CASE EVENT DATE: 20240401
